FAERS Safety Report 5347315-0 (Version None)
Quarter: 2007Q2

REPORT INFORMATION
  Report Type: 
  Country: None (occurrence: None)
  Receive Date: 20070507
  Receipt Date: 20070313
  Transmission Date: 20071010
  Serious: Yes (Hospitalization, Other)
  Sender: FDA-Public Use
  Company Number: 35180

PATIENT
  Age: 65 Year
  Sex: Female
  Weight: 73.0291 kg

DRUGS (6)
  1. ADRIAMYCIN PFS [Suspect]
     Indication: NON-HODGKIN'S LYMPHOMA
     Dosage: 90MG/EVERY 3 WKS
     Dates: start: 20070123, end: 20070213
  2. ADRIAMYCIN PFS [Suspect]
     Indication: NON-HODGKIN'S LYMPHOMA
     Dosage: 90MG/EVERY 3 WKS
     Dates: start: 20061212
  3. CYCLOPHOSPHAMIDE [Concomitant]
  4. VINCRISTINE [Concomitant]
  5. PREDNISONE TAB [Concomitant]
  6. RITUXIMAB [Concomitant]

REACTIONS (1)
  - NEUTROPENIA [None]
